FAERS Safety Report 4620475-2 (Version None)
Quarter: 2005Q1

REPORT INFORMATION
  Report Type: 
  Country: None (occurrence: None)
  Receive Date: 20050324
  Receipt Date: 20050315
  Transmission Date: 20050727
  Serious: Yes (Hospitalization)
  Sender: FDA-Public Use
  Company Number: STA-AE-05-006

PATIENT
  Age: 57 Year
  Sex: Male
  Weight: 65 kg

DRUGS (2)
  1. VERAPAMIL [Suspect]
     Dosage: 20 TABLETS
  2. ATENOLOL [Suspect]
     Dosage: 28 TABLETS

REACTIONS (14)
  - ANURIA [None]
  - ATRIOVENTRICULAR BLOCK FIRST DEGREE [None]
  - BLOOD PRESSURE DECREASED [None]
  - COLD SWEAT [None]
  - DEVICE FAILURE [None]
  - GLASGOW COMA SCALE ABNORMAL [None]
  - HYPOVENTILATION [None]
  - INTENTIONAL MISUSE [None]
  - NASOPHARYNGITIS [None]
  - PULMONARY OEDEMA [None]
  - PULSE ABSENT [None]
  - SINUS BRADYCARDIA [None]
  - THERAPY NON-RESPONDER [None]
  - VASCULAR RESISTANCE SYSTEMIC INCREASED [None]
